FAERS Safety Report 24847463 (Version 1)
Quarter: 2025Q1

REPORT INFORMATION
  Report Type: Spontaneous
  Country: FR (occurrence: FR)
  Receive Date: 20250116
  Receipt Date: 20250116
  Transmission Date: 20250409
  Serious: Yes (Death, Life-Threatening, Hospitalization)
  Sender: CHEPLAPHARM
  Company Number: None

PATIENT
  Age: 58 Year
  Sex: Male
  Weight: 65 kg

DRUGS (32)
  1. DOXORUBICIN [Suspect]
     Active Substance: DOXORUBICIN
     Indication: Follicular lymphoma
     Route: 042
     Dates: start: 20220105, end: 20220214
  2. HYDROXYUREA [Suspect]
     Active Substance: HYDROXYUREA
     Dosage: HYDREA 500 MG 3 TABLETS MORNING, NOON AND EVENING?DAILY DOSE: 3 DOSAGE FORM
     Dates: start: 202408
  3. PREDNISONE [Suspect]
     Active Substance: PREDNISONE
     Indication: B-cell lymphoma
  4. RITUXIMAB [Suspect]
     Active Substance: RITUXIMAB
     Indication: B-cell lymphoma
     Route: 042
     Dates: start: 20160118, end: 20160307
  5. RITUXIMAB [Suspect]
     Active Substance: RITUXIMAB
     Indication: B-cell lymphoma
     Dosage: JULY: 4 WEEKLY INJECTIONS OF RITUXIMAB
     Dates: start: 201807
  6. RITUXIMAB [Suspect]
     Active Substance: RITUXIMAB
     Indication: B-cell lymphoma
     Dosage: AUGUST: 4 MONTHLY COURSES OF RITUXIMAB
     Dates: start: 201808
  7. CYCLOPHOSPHAMIDE [Suspect]
     Active Substance: CYCLOPHOSPHAMIDE
     Indication: B-cell lymphoma
     Route: 042
     Dates: start: 20160118, end: 20160307
  8. VINDESINE SULFATE [Suspect]
     Active Substance: VINDESINE SULFATE
     Indication: B-cell lymphoma
     Route: 042
     Dates: start: 20160118, end: 20160307
  9. BLEOMYCIN SULFATE [Suspect]
     Active Substance: BLEOMYCIN SULFATE
     Indication: B-cell lymphoma
     Route: 042
     Dates: start: 20160118, end: 20160307
  10. METHOTREXATE [Suspect]
     Active Substance: METHOTREXATE
     Indication: B-cell lymphoma
     Route: 037
     Dates: start: 20160118, end: 20160307
  11. METHOTREXATE [Suspect]
     Active Substance: METHOTREXATE
     Indication: B-cell lymphoma
     Route: 042
     Dates: start: 20160406, end: 20160427
  12. METHOTREXATE [Suspect]
     Active Substance: METHOTREXATE
     Indication: B-cell lymphoma
     Route: 042
     Dates: start: 202201, end: 202202
  13. IFOSFAMIDE [Suspect]
     Active Substance: IFOSFAMIDE
     Indication: B-cell lymphoma
     Route: 042
     Dates: start: 20160518, end: 20160629
  14. IFOSFAMIDE [Suspect]
     Active Substance: IFOSFAMIDE
     Indication: B-cell lymphoma
     Dates: start: 202103, end: 202107
  15. ETOPOSIDE [Suspect]
     Active Substance: ETOPOSIDE
     Indication: B-cell lymphoma
     Route: 042
     Dates: start: 20160518, end: 20160629
  16. CYTARABINE [Suspect]
     Active Substance: CYTARABINE
     Indication: B-cell lymphoma
     Route: 058
     Dates: start: 20160713, end: 20160730
  17. CYTARABINE [Suspect]
     Active Substance: CYTARABINE
     Indication: B-cell lymphoma
     Dates: start: 202404, end: 202407
  18. OBINUTUZUMAB [Suspect]
     Active Substance: OBINUTUZUMAB
     Indication: Follicular lymphoma
     Route: 042
     Dates: start: 20190603, end: 20190912
  19. ATEZOLIZUMAB [Suspect]
     Active Substance: ATEZOLIZUMAB
     Indication: Follicular lymphoma
     Route: 042
     Dates: start: 20190603, end: 20190912
  20. VENETOCLAX [Suspect]
     Active Substance: VENETOCLAX
     Indication: Follicular lymphoma
     Dosage: 800MG/J (J1-J21)?DAILY DOSE: 800 MILLIGRAM
     Route: 048
     Dates: start: 20190603, end: 20191002
  21. VEPESID [Suspect]
     Active Substance: ETOPOSIDE
     Indication: Follicular lymphoma
     Route: 042
     Dates: start: 20210302, end: 20210701
  22. LENALIDOMIDE [Suspect]
     Active Substance: LENALIDOMIDE
     Indication: Follicular lymphoma
     Dosage: 20MG/J?DAILY DOSE: 20 MILLIGRAM
     Route: 048
     Dates: start: 20210302, end: 20210714
  23. IDELALISIB [Suspect]
     Active Substance: IDELALISIB
     Indication: Follicular lymphoma
     Dosage: 300MG/J. 4TH LINE THERAPY. 07/21: IDELALISIB?DAILY DOSE: 300 MILLIGRAM
     Route: 048
     Dates: start: 20210720, end: 20211020
  24. GEMCITABINE [Suspect]
     Active Substance: GEMCITABINE
     Indication: Follicular lymphoma
     Route: 042
     Dates: start: 20220105, end: 20220214
  25. VINORELBINE TARTRATE [Suspect]
     Active Substance: VINORELBINE TARTRATE
     Indication: Follicular lymphoma
     Route: 042
     Dates: start: 20220105, end: 20220214
  26. FLUDARABINE PHOSPHATE [Suspect]
     Active Substance: FLUDARABINE PHOSPHATE
     Indication: Follicular lymphoma
     Route: 042
     Dates: start: 20220324, end: 20220326
  27. KYMRIAH [Suspect]
     Active Substance: TISAGENLECLEUCEL
     Indication: Follicular lymphoma
     Route: 042
     Dates: start: 20220329, end: 20220329
  28. VIDAZA [Suspect]
     Active Substance: AZACITIDINE
     Dates: start: 20240115
  29. VENETOCLAX [Suspect]
     Active Substance: VENETOCLAX
     Dates: start: 20240301
  30. VALACYCLOVIR HYDROCHLORIDE [Concomitant]
     Active Substance: VALACYCLOVIR HYDROCHLORIDE
     Dosage: VALACICLOVIR 1 TABLET MORNING ?DAILY DOSE: 1 DOSAGE FORM
  31. BACTRIM [Concomitant]
     Active Substance: SULFAMETHOXAZOLE\TRIMETHOPRIM
     Dosage: BACTRIM FORT 1 TABLET ON MONDAYS AND THURSDAYS
  32. FOLIC ACID [Concomitant]
     Active Substance: FOLIC ACID

REACTIONS (6)
  - Pancytopenia [Fatal]
  - Sepsis [Fatal]
  - Acute myeloid leukaemia [Not Recovered/Not Resolved]
  - Cellulitis [Unknown]
  - Oesophageal candidiasis [Unknown]
  - Off label use [Recovered/Resolved]

NARRATIVE: CASE EVENT DATE: 20220105
